FAERS Safety Report 4941170-6 (Version None)
Quarter: 2006Q1

REPORT INFORMATION
  Report Type: 
  Country: None (occurrence: None)
  Receive Date: 20060308
  Receipt Date: 20060223
  Transmission Date: 20060701
  Serious: Yes (Hospitalization)
  Sender: FDA-Public Use
  Company Number: 200610460BCC

PATIENT
  Age: 13 Year
  Sex: Female
  Weight: 63.5036 kg

DRUGS (1)
  1. MIDOL [Suspect]
     Indication: DYSMENORRHOEA
     Dosage: 6600 MG, TOTAL DAILY, ORAL
     Route: 048
     Dates: start: 20060124

REACTIONS (3)
  - FULL BLOOD COUNT INCREASED [None]
  - LIVER FUNCTION TEST ABNORMAL [None]
  - OVERDOSE [None]
